FAERS Safety Report 9675576 (Version 1)
Quarter: 2013Q4

REPORT INFORMATION
  Report Type: Report from Study
  Country: US (occurrence: US)
  Receive Date: 20131107
  Receipt Date: 20131107
  Transmission Date: 20140711
  Serious: Yes (Congenital Anomaly, Other)
  Sender: FDA-Public Use
  Company Number: US-GILEAD-2013-0086854

PATIENT
  Sex: Female

DRUGS (7)
  1. EMTRICITABINE/TENOFOVIR DISOPROXIL FUMARATE [Suspect]
     Indication: HIV INFECTION
     Dosage: 1 DF, QD
     Route: 064
     Dates: start: 20121022
  2. KALETRA [Suspect]
     Indication: HIV INFECTION
     Dosage: 4 DF, QD
     Route: 064
     Dates: start: 20120430, end: 20121022
  3. NORVIR [Suspect]
     Indication: HIV INFECTION
     Dosage: 100 MG, QD
     Route: 064
     Dates: start: 20121022
  4. COMBIVIR [Suspect]
     Indication: HIV INFECTION
     Dosage: 2 DF, QD
     Route: 064
     Dates: start: 20120430, end: 20121022
  5. REYATAZ [Suspect]
     Indication: HIV INFECTION
     Dosage: 300 MG, QD
     Route: 064
     Dates: start: 20121022
  6. RETROVIR [Suspect]
     Indication: HIV INFECTION
     Dosage: 2 MG/KG, Q1HR
     Route: 064
     Dates: start: 20121207
  7. RETROVIR [Suspect]
     Dosage: 1 MG/KG, Q1HR
     Route: 064
     Dates: start: 20121207

REACTIONS (3)
  - Congenital choroidal anomaly [Unknown]
  - Skull malformation [Unknown]
  - Foetal exposure during pregnancy [Unknown]
